FAERS Safety Report 6234512-5 (Version None)
Quarter: 2009Q2

REPORT INFORMATION
  Report Type: 
  Country: None (occurrence: None)
  Receive Date: 20090618
  Receipt Date: 20081124
  Transmission Date: 20091009
  Serious: No
  Sender: FDA-Public Use
  Company Number: US-BRISTOL-MYERS SQUIBB COMPANY-14442164

PATIENT
  Age: 74 Year
  Sex: Female

DRUGS (1)
  1. CARBIDOPA + LEVODOPA [Suspect]
     Indication: TREMOR
     Route: 048

REACTIONS (4)
  - ABDOMINAL DISCOMFORT [None]
  - DRUG INEFFECTIVE [None]
  - DRUG INTOLERANCE [None]
  - RETCHING [None]
